FAERS Safety Report 8760985 (Version 1)
Quarter: 2012Q4

REPORT INFORMATION
  Report Type: 
  Country: US (occurrence: US)
  Receive Date: 20120830
  Receipt Date: 20120830
  Transmission Date: 20130627
  Serious: Yes (Hospitalization)
  Sender: FDA-Public Use
  Company Number: US-FRI-1000038204

PATIENT
  Age: 48 Year
  Sex: Female

DRUGS (8)
  1. ARMOUR THYROID [Suspect]
     Indication: HYPOTHYROIDISM
     Dosage: 150 mg
     Route: 048
     Dates: start: 2010
  2. PROVIGIL [Concomitant]
  3. ACIPHEX [Concomitant]
     Indication: GASTROOESOPHAGEAL REFLUX DISEASE
  4. ALLEGRA [Concomitant]
     Indication: SEASONAL ALLERGY
  5. CYMBALTA [Concomitant]
     Indication: PAIN
  6. RESTASIS [Concomitant]
  7. SKELAXIN [Concomitant]
     Indication: PAIN
  8. TRAMADOL [Concomitant]
     Indication: PAIN

REACTIONS (2)
  - Diverticulitis [Recovering/Resolving]
  - Wrong drug administered [Recovered/Resolved]
